FAERS Safety Report 20634450 (Version 1)
Quarter: 2022Q1

REPORT INFORMATION
  Report Type: Report from Study
  Country: US (occurrence: US)
  Receive Date: 20220325
  Receipt Date: 20220325
  Transmission Date: 20220423
  Serious: No
  Sender: FDA-Public Use
  Company Number: US-ACADIA PHARMACEUTICALS INC.-ACA-2022-PIM-000771

PATIENT
  Age: 56 Year
  Sex: Male

DRUGS (20)
  1. NUPLAZID [Suspect]
     Active Substance: PIMAVANSERIN TARTRATE
     Indication: Hallucination
     Dosage: 34 MILLIGRAM, QD
     Route: 065
     Dates: start: 20220107
  2. NUPLAZID [Suspect]
     Active Substance: PIMAVANSERIN TARTRATE
     Indication: Delusion
     Dosage: 44 MILLIGRAM, QD
     Route: 065
     Dates: start: 20220224
  3. NUPLAZID [Suspect]
     Active Substance: PIMAVANSERIN TARTRATE
     Indication: Parkinson^s disease psychosis
  4. NUPLAZID [Suspect]
     Active Substance: PIMAVANSERIN TARTRATE
     Indication: Parkinson^s disease psychosis
     Dosage: 44 MILLIGRAM, QD
     Route: 065
     Dates: start: 20220224
  5. NUPLAZID [Suspect]
     Active Substance: PIMAVANSERIN TARTRATE
     Indication: Hallucination
  6. NUPLAZID [Suspect]
     Active Substance: PIMAVANSERIN TARTRATE
     Indication: Delusion
  7. APOKYN [Concomitant]
     Active Substance: APOMORPHINE HYDROCHLORIDE
     Dosage: 30 MG/ML; INJECT 0.5 ML AS NEEDED FOR OFF PERIODS UPTO 5 TIMES DAILY
     Route: 058
  8. ASPIRIN [Concomitant]
     Active Substance: ASPIRIN
     Dosage: 81 MG 1 TAB DAILY
  9. ATORVASTATIN CALCIUM [Concomitant]
     Active Substance: ATORVASTATIN CALCIUM
     Dosage: 40 MG A TABLET AT BEDTIME
  10. CARBIDOPA\LEVODOPA [Concomitant]
     Active Substance: CARBIDOPA\LEVODOPA
     Dosage: 25-100 MG; DISSOLVE 1 TAB IN MOUTH AT 5 AM, 8 AM,11AM, 2 PM, 5 PM, 8 PM, 11 PM, AND 1 AM
     Dates: start: 20161017
  11. CARBIDOPA\LEVODOPA [Concomitant]
     Active Substance: CARBIDOPA\LEVODOPA
     Dosage: 50-200 MG; TAKE 1 TAB AT 5AM, 1 TAB AT 8 AM, 1 AT 11AM, 1 AT 2PM, 1 AT 5 PM, 1 AT 8 PM, 11PM, 1 AM
     Route: 048
     Dates: start: 20200214
  12. DIAZEPAM [Concomitant]
     Active Substance: DIAZEPAM
     Dosage: 10 MG; TAKE 0.5 TAB AT 5 AM, 1 TAB AT 11 AM, 0.5 AT 5 PM, 1 AT 8-9 PM, 1 AT 1 AM; MDD : 4 TABS
     Dates: start: 20200814
  13. MIRALAX [Concomitant]
     Active Substance: POLYETHYLENE GLYCOL 3350
     Dosage: 17 GM PACKET
     Route: 048
  14. NITROBIDE [Concomitant]
  15. PANTOPRAZOLE SODIUM [Concomitant]
     Active Substance: PANTOPRAZOLE SODIUM
     Dosage: 40 MG
  16. QUETIAPINE FUMARATE [Concomitant]
     Active Substance: QUETIAPINE FUMARATE
     Dosage: 25 MG; 3 TABS AT 9 PM, 1 TAB OVERNIGHT
     Dates: start: 20211227
  17. SENNA LEAF [Concomitant]
     Active Substance: SENNA LEAF
  18. SOTALOL [Concomitant]
     Active Substance: SOTALOL
     Dosage: 120 MG; TAKE 1 TABLET TWICE DAILY
     Route: 048
  19. TRIHEXYPHENIDYL HYDROCHLORIDE [Concomitant]
     Active Substance: TRIHEXYPHENIDYL HYDROCHLORIDE
     Dosage: 2 MG ; 1 TAB AT 5 AM,1/2 TAB AT 11 AM, 1 TAB AT 5 PM
     Route: 048
     Dates: start: 20210802
  20. CLOPIDOGREL BISULFATE [Concomitant]
     Active Substance: CLOPIDOGREL BISULFATE
     Dosage: 75 MG QD
     Route: 048

REACTIONS (2)
  - Therapeutic response decreased [Unknown]
  - Prescribed overdose [Not Recovered/Not Resolved]

NARRATIVE: CASE EVENT DATE: 20220222
